FAERS Safety Report 5482278-9 (Version None)
Quarter: 2007Q4

REPORT INFORMATION
  Report Type: 
  Country: None (occurrence: None)
  Receive Date: 20071011
  Receipt Date: 20071003
  Transmission Date: 20080405
  Serious: Yes (Hospitalization)
  Sender: FDA-Public Use
  Company Number: US-JNJFOC-20071001244

PATIENT
  Sex: Female

DRUGS (3)
  1. TYLENOL (CAPLET) [Suspect]
  2. TYLENOL (CAPLET) [Suspect]
     Indication: INTENTIONAL SELF-INJURY
     Dosage: UNKNOWN
  3. COPAXONE [Concomitant]
     Indication: MULTIPLE SCLEROSIS
     Route: 058

REACTIONS (2)
  - INTENTIONAL OVERDOSE [None]
  - UNRESPONSIVE TO STIMULI [None]
